FAERS Safety Report 11424089 (Version 1)
Quarter: 2015Q3

REPORT INFORMATION
  Report Type: Spontaneous
  Country: AU (occurrence: AU)
  Receive Date: 20150827
  Receipt Date: 20150827
  Transmission Date: 20151125
  Serious: Yes (Hospitalization)
  Sender: FDA-Public Use
  Company Number: AU-BAYER-2015-403083

PATIENT
  Age: 38 Year
  Sex: Female

DRUGS (5)
  1. ESTRADIOL. [Suspect]
     Active Substance: ESTRADIOL
     Indication: HORMONE REPLACEMENT THERAPY
     Route: 062
  2. DEXAMFETAMINE [Suspect]
     Active Substance: DEXTROAMPHETAMINE
     Indication: ATTENTION DEFICIT/HYPERACTIVITY DISORDER
     Dosage: 30 MG, QD
     Route: 048
  3. ESTRADIOL. [Suspect]
     Active Substance: ESTRADIOL
     Indication: OVARIAN FAILURE
  4. ESTRADIOL. [Concomitant]
     Active Substance: ESTRADIOL
     Indication: OVARIAN FAILURE
  5. ESTRADIOL. [Concomitant]
     Active Substance: ESTRADIOL
     Indication: HORMONE REPLACEMENT THERAPY
     Dosage: DAILY DOSE 1 DF (SACHET)
     Route: 062

REACTIONS (3)
  - Menorrhagia [None]
  - Psychotic disorder [None]
  - Metrorrhagia [None]
